FAERS Safety Report 12578087 (Version 1)
Quarter: 2016Q3

REPORT INFORMATION
  Report Type: Spontaneous
  Country: US (occurrence: None)
  Receive Date: 20160720
  Receipt Date: 20160720
  Transmission Date: 20161109
  Serious: No
  Sender: FDA-Public Use
  Company Number: None

PATIENT
  Age: 47 Year
  Sex: Female
  Weight: 65.77 kg

DRUGS (1)
  1. AMPHETAMINE SALTS 10 MG, 10 MG MYLAN [Suspect]
     Active Substance: AMPHETAMINE ASPARTATE\AMPHETAMINE SULFATE\DEXTROAMPHETAMINE SACCHARATE\DEXTROAMPHETAMINE SULFATE
     Indication: ATTENTION DEFICIT/HYPERACTIVITY DISORDER
     Route: 048
     Dates: start: 20160701

REACTIONS (7)
  - Agitation [None]
  - Product substitution issue [None]
  - Apathy [None]
  - Nausea [None]
  - Anxiety [None]
  - Product quality issue [None]
  - Disturbance in attention [None]

NARRATIVE: CASE EVENT DATE: 20160701
